FAERS Safety Report 14983891 (Version 1)
Quarter: 2018Q2

REPORT INFORMATION
  Report Type: Spontaneous
  Country: US (occurrence: US)
  Receive Date: 20180607
  Receipt Date: 20180607
  Transmission Date: 20180711
  Serious: No
  Sender: FDA-Public Use
  Company Number: US-TARO-2018TAR00045

PATIENT
  Age: 2 Year
  Sex: Female
  Weight: 14.06 kg

DRUGS (3)
  1. BETAMETHASONE DIPROPIONATE CREAM USP 0.05% [Suspect]
     Active Substance: BETAMETHASONE DIPROPIONATE
     Indication: GENITAL LABIAL ADHESIONS
  2. MIRALAX [Concomitant]
     Active Substance: POLYETHYLENE GLYCOL 3350
     Dosage: UNK, AS NEEDED
  3. BETAMETHASONE DIPROPIONATE CREAM USP 0.05% [Suspect]
     Active Substance: BETAMETHASONE DIPROPIONATE
     Indication: VULVOVAGINAL ADHESION
     Dosage: ^SMALL AMOUNT ON FINGERTIP,^ 2X/DAY
     Route: 067
     Dates: start: 20180118, end: 20180118

REACTIONS (10)
  - Oropharyngeal pain [Recovering/Resolving]
  - Off label use [Recovered/Resolved]
  - Abnormal behaviour [Recovering/Resolving]
  - Pharyngeal erythema [Recovering/Resolving]
  - Crying [Recovering/Resolving]
  - Disorientation [Recovering/Resolving]
  - Screaming [Recovering/Resolving]
  - Product prescribing issue [Recovered/Resolved]
  - Application site burn [Recovering/Resolving]
  - Product use issue [Recovered/Resolved]

NARRATIVE: CASE EVENT DATE: 201801
